FAERS Safety Report 15856243 (Version 1)
Quarter: 2019Q1

REPORT INFORMATION
  Report Type: Spontaneous
  Country: CA (occurrence: CA)
  Receive Date: 20190123
  Receipt Date: 20190123
  Transmission Date: 20190417
  Serious: Yes (Hospitalization)
  Sender: FDA-Public Use
  Company Number: CA-TEVA-2019-CA-1002493

PATIENT
  Sex: Male

DRUGS (4)
  1. ESCITALOPRAM [Suspect]
     Active Substance: ESCITALOPRAM OXALATE
     Indication: ANTIDEPRESSANT THERAPY
     Dosage: 10 MILLIGRAM DAILY;
     Route: 048
  2. PREGABALIN. [Concomitant]
     Active Substance: PREGABALIN
  3. BACLOFEN. [Concomitant]
     Active Substance: BACLOFEN
  4. CIALIS [Concomitant]
     Active Substance: TADALAFIL

REACTIONS (2)
  - Coma [Recovered/Resolved]
  - Inappropriate antidiuretic hormone secretion [Recovered/Resolved]
